FAERS Safety Report 25182777 (Version 1)
Quarter: 2025Q2

REPORT INFORMATION
  Report Type: Spontaneous
  Country: DE (occurrence: DE)
  Receive Date: 20250410
  Receipt Date: 20250410
  Transmission Date: 20250716
  Serious: Yes (Other)
  Sender: AUROBINDO
  Company Number: DE-KOANAAP-SML-DE-2024-01208

PATIENT
  Age: 25 Year
  Sex: Male

DRUGS (6)
  1. FINGOLIMOD [Suspect]
     Active Substance: FINGOLIMOD
     Indication: Viraemia
     Route: 065
  2. AXATILIMAB [Concomitant]
     Active Substance: AXATILIMAB
     Indication: Graft versus host disease
     Route: 065
  3. ALDESLEUKIN [Concomitant]
     Active Substance: ALDESLEUKIN
     Indication: Lymphocyte count
     Route: 065
  4. METHYLPREDNISOLONE [Concomitant]
     Active Substance: METHYLPREDNISOLONE
     Indication: Product used for unknown indication
     Route: 065
  5. Belumosudil mesilate [Concomitant]
     Indication: Product used for unknown indication
     Route: 065
  6. TACROLIMUS [Concomitant]
     Active Substance: TACROLIMUS
     Indication: Product used for unknown indication
     Route: 065

REACTIONS (1)
  - Off label use [Unknown]
